FAERS Safety Report 6448010-7 (Version None)
Quarter: 2009Q4

REPORT INFORMATION
  Report Type: 
  Country: None (occurrence: None)
  Receive Date: 20091120
  Receipt Date: 20091111
  Transmission Date: 20100525
  Serious: Yes (Other)
  Sender: FDA-Public Use
  Company Number: BR-ROCHE-667046

PATIENT
  Sex: Male
  Weight: 74 kg

DRUGS (2)
  1. PEGASYS [Suspect]
     Indication: HEPATITIS C
     Dosage: DOSE: 180 UG/0.5ML
     Route: 065
     Dates: start: 20060401
  2. ENALAPRIL MALEATE [Concomitant]
     Dosage: FREQUENCY: DAILY

REACTIONS (7)
  - DISORIENTATION [None]
  - DIZZINESS [None]
  - FALL [None]
  - FEAR [None]
  - LABORATORY TEST ABNORMAL [None]
  - NEUROPATHY PERIPHERAL [None]
  - TRANSAMINASES ABNORMAL [None]
